FAERS Safety Report 4289868-X (Version None)
Quarter: 2004Q1

REPORT INFORMATION
  Report Type: 
  Country: None (occurrence: None)
  Receive Date: 20040209
  Receipt Date: 20020218
  Transmission Date: 20041129
  Serious: No
  Sender: FDA-Public Use
  Company Number: US-GLAXOSMITHKLINE-A0361491A

PATIENT
  Age: 66 Year
  Sex: Female

DRUGS (9)
  1. PAXIL [Suspect]
     Indication: ANXIETY
     Dosage: 20MG PER DAY
     Route: 048
     Dates: start: 20010101
  2. PATANOL [Suspect]
     Indication: EYE ALLERGY
  3. PROVENTIL [Concomitant]
     Dosage: 2PUFF FIVE TIMES PER DAY
     Route: 055
  4. BETAXOLOL [Concomitant]
     Dosage: 1DROP TWICE PER DAY
     Route: 047
  5. PLAQUENIL [Concomitant]
     Dosage: 200MG TWICE PER DAY
     Route: 048
  6. XANAX [Concomitant]
     Dosage: .25MG PER DAY
     Route: 048
  7. IMURAN [Concomitant]
     Dosage: 50MG PER DAY
     Route: 048
  8. ZOCOR [Concomitant]
     Dosage: 20MG PER DAY
     Route: 048
  9. PREDNISONE [Concomitant]
     Dosage: 5MG AS REQUIRED
     Route: 048

REACTIONS (6)
  - BLISTER [None]
  - DRY SKIN [None]
  - EYE PRURITUS [None]
  - EYE REDNESS [None]
  - JOINT SWELLING [None]
  - OEDEMA PERIPHERAL [None]
